FAERS Safety Report 14963751 (Version 4)
Quarter: 2018Q2

REPORT INFORMATION
  Report Type: Report from Study
  Country: PL (occurrence: PL)
  Receive Date: 20180601
  Receipt Date: 20180628
  Transmission Date: 20180711
  Serious: Yes (Hospitalization)
  Sender: FDA-Public Use
  Company Number: PL-009507513-1705POL012830

PATIENT
  Age: 72 Year
  Sex: Male
  Weight: 84.7 kg

DRUGS (14)
  1. GLIBETIC (GLIMEPIRIDE) [Concomitant]
     Indication: TYPE 2 DIABETES MELLITUS
     Dosage: 4 MG DAILY
     Dates: start: 201601
  2. BLINDED ERTUGLIFLOZIN [Suspect]
     Active Substance: ERTUGLIFLOZIN
     Indication: TYPE 2 DIABETES MELLITUS
     Dosage: UNK
     Route: 048
     Dates: start: 20170227, end: 20180225
  3. TERTENSIF SR [Concomitant]
     Indication: HYPERTENSION
     Dosage: 1.5 MG DAILY
     Dates: start: 201601
  4. NEVANAC [Concomitant]
     Active Substance: NEPAFENAC
     Indication: DIABETIC RETINOPATHY
     Dosage: 0.1 MG DAILY
     Dates: start: 20170327, end: 201712
  5. DICLOABAK [Concomitant]
     Active Substance: DICLOFENAC SODIUM
     Indication: DIABETIC RETINOPATHY
     Dosage: 0.1 MG DAILY
     Dates: start: 20170327, end: 201712
  6. VALSACOR [Concomitant]
     Active Substance: VALSARTAN
     Indication: HYPERTENSION
     Dosage: 80 MG DAILY
     Dates: start: 201601
  7. SOBYCOR [Concomitant]
     Active Substance: BISOPROLOL FUMARATE
     Indication: HYPERTENSION
     Dosage: 5 MG DAILY
     Dates: start: 201601
  8. OMNIC OCAS [Concomitant]
     Active Substance: TAMSULOSIN HYDROCHLORIDE
     Indication: BENIGN PROSTATIC HYPERPLASIA
     Dosage: 0.4 MG DAILY
     Dates: start: 201602, end: 20170611
  9. GALVENOX [Concomitant]
     Indication: DIABETIC RETINOPATHY
     Dosage: 1000 MG DAILY
     Dates: start: 20170327, end: 201712
  10. AMLOZEK [Concomitant]
     Active Substance: AMLODIPINE BESYLATE
     Indication: HYPERTENSION
     Dosage: 5 MG DAILY
     Dates: start: 201601, end: 20170711
  11. POLOCARD [Concomitant]
     Active Substance: ASPIRIN
     Indication: MYOCARDIAL ISCHAEMIA
     Dosage: 150 MG DAILY
     Dates: start: 201601
  12. METFORMAX [Concomitant]
     Active Substance: METFORMIN HYDROCHLORIDE
     Indication: TYPE 2 DIABETES MELLITUS
     Dosage: 3000 MG DAILY
     Dates: start: 201601
  13. ETHAMSYLATE [Concomitant]
     Active Substance: ETHAMSYLATE
     Indication: DIABETIC RETINOPATHY
     Dosage: 1000 MG DAILY
     Dates: start: 20170327, end: 201712
  14. ATORIS [Concomitant]
     Active Substance: ATORVASTATIN CALCIUM
     Indication: HYPERCHOLESTEROLAEMIA
     Dosage: 20 MG DAILY
     Dates: start: 201603

REACTIONS (4)
  - Peripheral ischaemia [Not Recovered/Not Resolved]
  - Rib fracture [Recovered/Resolved]
  - Pneumonia [Recovered/Resolved]
  - Sepsis [Recovered/Resolved]

NARRATIVE: CASE EVENT DATE: 20170521
